FAERS Safety Report 18939759 (Version 2)
Quarter: 2021Q3

REPORT INFORMATION
  Report Type: Spontaneous
  Country: US (occurrence: US)
  Receive Date: 20210224
  Receipt Date: 20210721
  Transmission Date: 20211014
  Serious: Yes (Other)
  Sender: FDA-Public Use
  Company Number: US-TAKEDA-2019TUS029163

PATIENT

DRUGS (29)
  1. LEVOFLOXACINE ACCORD [Concomitant]
     Active Substance: LEVOFLOXACIN
     Indication: LYME DISEASE
     Dosage: UNK
     Dates: start: 2001, end: 2001
  2. ADVIL 12HOUR [Concomitant]
     Active Substance: IBUPROFEN
     Indication: HEADACHE
     Dosage: UNK
  3. OMEPRAZOLE. [Suspect]
     Active Substance: OMEPRAZOLE
     Indication: GASTROOESOPHAGEAL REFLUX DISEASE
     Dosage: UNK
     Route: 048
     Dates: start: 200805, end: 200807
  4. PRILOSEC [Suspect]
     Active Substance: OMEPRAZOLE MAGNESIUM
     Indication: GASTROOESOPHAGEAL REFLUX DISEASE
     Dosage: UNK
     Route: 048
     Dates: start: 2000, end: 2008
  5. CIPROFLOXACIN. [Concomitant]
     Active Substance: CIPROFLOXACIN
     Indication: LYME DISEASE
     Dosage: UNK
     Dates: start: 2001, end: 2001
  6. PREVACID 24 HR [Suspect]
     Active Substance: LANSOPRAZOLE
     Indication: GASTROOESOPHAGEAL REFLUX DISEASE
     Dosage: UNK
     Route: 048
     Dates: start: 2009
  7. DOXYCYCLINE. [Concomitant]
     Active Substance: DOXYCYCLINE
     Indication: LYME DISEASE
     Dosage: UNK
     Dates: start: 2001, end: 2001
  8. PEPCID AC [Concomitant]
     Active Substance: FAMOTIDINE
     Dosage: UNK
  9. PANTOPRAZOLE [Suspect]
     Active Substance: PANTOPRAZOLE
  10. LANSOPRAZOLE. [Suspect]
     Active Substance: LANSOPRAZOLE
  11. NEXIUM 24HR [Suspect]
     Active Substance: ESOMEPRAZOLE MAGNESIUM
     Indication: GASTROOESOPHAGEAL REFLUX DISEASE
     Dosage: UNK
     Route: 048
     Dates: start: 2014
  12. OMEPRAZOLE. [Suspect]
     Active Substance: OMEPRAZOLE
     Dosage: UNK
     Route: 048
     Dates: start: 2014
  13. TRAMADOL. [Concomitant]
     Active Substance: TRAMADOL
     Indication: LYME DISEASE
     Dosage: UNK
     Dates: start: 2001, end: 2001
  14. MINOCYCLINE [Concomitant]
     Active Substance: MINOCYCLINE HYDROCHLORIDE
  15. PREVACID [Suspect]
     Active Substance: LANSOPRAZOLE
     Indication: GASTROOESOPHAGEAL REFLUX DISEASE
     Dosage: UNK
     Route: 048
     Dates: start: 2000, end: 2008
  16. NEXIUM 24HR [Suspect]
     Active Substance: ESOMEPRAZOLE MAGNESIUM
     Dosage: UNK
     Route: 048
     Dates: start: 200805, end: 200807
  17. MELOXICAM. [Concomitant]
     Active Substance: MELOXICAM
     Indication: LYME DISEASE
     Dosage: UNK
     Dates: start: 2001, end: 2017
  18. HYDROCHLOROTHIAZIDE. [Concomitant]
     Active Substance: HYDROCHLOROTHIAZIDE
     Indication: LYME DISEASE
     Dosage: UNK
     Dates: start: 2001, end: 2001
  19. LEVOFLOXACIN. [Concomitant]
     Active Substance: LEVOFLOXACIN
  20. PROTONIX [Suspect]
     Active Substance: PANTOPRAZOLE SODIUM
     Indication: GASTROOESOPHAGEAL REFLUX DISEASE
     Dosage: UNK
     Route: 048
     Dates: start: 200805, end: 200807
  21. NEXIUM [Suspect]
     Active Substance: ESOMEPRAZOLE MAGNESIUM
     Indication: GASTROOESOPHAGEAL REFLUX DISEASE
     Dosage: UNK
     Route: 048
     Dates: start: 200805, end: 200807
  22. OMEPRAZOLE MAGNESIUM. [Suspect]
     Active Substance: OMEPRAZOLE MAGNESIUM
     Indication: PRODUCT USED FOR UNKNOWN INDICATION
     Dosage: UNK
     Route: 048
     Dates: start: 200805, end: 200807
  23. NAPROXEN. [Concomitant]
     Active Substance: NAPROXEN
     Indication: LYME DISEASE
     Dosage: UNK
     Dates: start: 2001, end: 2001
  24. LEVOFLOXACIN. [Concomitant]
     Active Substance: LEVOFLOXACIN
  25. PROTONIX [Suspect]
     Active Substance: PANTOPRAZOLE SODIUM
     Dosage: UNK
     Route: 048
     Dates: start: 2000, end: 2008
  26. ESOMEPRAZOLE. [Suspect]
     Active Substance: ESOMEPRAZOLE MAGNESIUM
     Indication: GASTROOESOPHAGEAL REFLUX DISEASE
     Dosage: UNK
     Route: 048
  27. NEXIUM [Suspect]
     Active Substance: ESOMEPRAZOLE MAGNESIUM
     Dosage: UNK
     Route: 048
     Dates: start: 2001, end: 2008
  28. AMOXICILLIN. [Concomitant]
     Active Substance: AMOXICILLIN
     Indication: LYME DISEASE
     Dosage: UNK
     Dates: start: 2001, end: 2001
  29. MINOCYCLINE [Concomitant]
     Active Substance: MINOCYCLINE HYDROCHLORIDE

REACTIONS (2)
  - Acute kidney injury [Not Recovered/Not Resolved]
  - Chronic kidney disease [Not Recovered/Not Resolved]

NARRATIVE: CASE EVENT DATE: 2008
